FAERS Safety Report 4882451-4 (Version None)
Quarter: 2006Q1

REPORT INFORMATION
  Report Type: 
  Country: None (occurrence: None)
  Receive Date: 20060113
  Receipt Date: 20060105
  Transmission Date: 20060701
  Serious: Yes (Other)
  Sender: FDA-Public Use
  Company Number: 2006004444

PATIENT
  Age: 46 Year
  Sex: Male
  Weight: 73.9363 kg

DRUGS (1)
  1. VIAGRA [Suspect]
     Indication: ERECTILE DYSFUNCTION
     Dosage: ORAL
     Route: 048

REACTIONS (4)
  - DRUG INEFFECTIVE [None]
  - FALL [None]
  - FOOT FRACTURE [None]
  - REFUSAL OF TREATMENT BY PATIENT [None]
